FAERS Safety Report 7432645-9 (Version None)
Quarter: 2011Q2

REPORT INFORMATION
  Report Type: 
  Country: None (occurrence: None)
  Receive Date: 20110422
  Receipt Date: 20110412
  Transmission Date: 20111010
  Serious: Yes (Hospitalization)
  Sender: FDA-Public Use
  Company Number: US-ROCHE-696680

PATIENT
  Sex: Male
  Weight: 67.8 kg

DRUGS (19)
  1. BLINDED TOCILIZUMAB [Suspect]
     Indication: RHEUMATOID ARTHRITIS
     Dosage: LAST DOSE: 15 FEB 2010, DOSE: BLINDED
     Route: 042
     Dates: start: 20080218
  2. TRAMADOL HCL [Concomitant]
     Dates: start: 20080513
  3. PREVACID [Concomitant]
     Dates: start: 20100313
  4. PREDNISONE [Concomitant]
     Dates: start: 20070529
  5. GLUCOSAMINE SULFATE/CHONDROITIN [Concomitant]
     Dosage: DRUG: GLUCOSAMINE CHONDROITIN WITH MSM
     Dates: start: 20090331
  6. MAGNESIUM OXIDE [Concomitant]
     Dates: start: 20070430, end: 20090330
  7. METHOTREXATE [Concomitant]
     Dates: start: 20070529
  8. FOLIC ACID [Concomitant]
     Dates: start: 20070529
  9. MULTI-VITAMIN [Concomitant]
     Dosage: DRUG: MULTIVITAMIN WITH MINERALS
     Dates: start: 20090331
  10. FERROUS SULFATE TAB [Concomitant]
     Dates: start: 20070515, end: 20070529
  11. TUMS [Concomitant]
     Dosage: TUMS (CALCIUM)
     Dates: start: 20070613
  12. NEXIUM [Concomitant]
     Dates: start: 20070430, end: 20100312
  13. ES TYLENOL [Concomitant]
     Dates: start: 20070430
  14. GLUCOSAMINE SULFATE/CHONDROITIN [Concomitant]
     Dosage: DRUG: GLUCOSAMINE CHONDROITIN WITH MSM
     Dates: start: 20080801, end: 20090330
  15. MULTI-VITAMIN [Concomitant]
     Dosage: DRUG: MULTIVITAMIN WITH MINERALS
     Dates: start: 20070430, end: 20090330
  16. TOCILIZUMAB [Suspect]
     Indication: RHEUMATOID ARTHRITIS
     Dosage: FORM LIQUID, LAST DOSE ON 12 APRIL 2010
     Route: 042
     Dates: start: 20080804
  17. PREVACID [Concomitant]
     Dates: start: 20070430, end: 20100312
  18. FOSAMAX [Concomitant]
     Dates: start: 20080104
  19. TRAMADOL HCL [Concomitant]
     Dosage: 50 MG (2 TABLETS)
     Dates: start: 20070430, end: 20080512

REACTIONS (1)
  - CEREBROVASCULAR ACCIDENT [None]
